FAERS Safety Report 13468761 (Version 1)
Quarter: 2017Q2

REPORT INFORMATION
  Report Type: Report from Study
  Country: US (occurrence: US)
  Receive Date: 20170421
  Receipt Date: 20170421
  Transmission Date: 20170830
  Serious: Yes (Other)
  Sender: FDA-Public Use
  Company Number: PHEH2017US011298

PATIENT
  Sex: Female

DRUGS (1)
  1. COSENTYX [Suspect]
     Active Substance: SECUKINUMAB
     Indication: PSORIASIS
     Dosage: 300 MG, QMO
     Route: 058
     Dates: start: 20151002

REACTIONS (4)
  - Muscle rupture [Recovering/Resolving]
  - Inflammation [Recovering/Resolving]
  - Ligament rupture [Recovering/Resolving]
  - Myalgia [Recovering/Resolving]
